FAERS Safety Report 6375135-7 (Version None)
Quarter: 2009Q3

REPORT INFORMATION
  Report Type: 
  Country: None (occurrence: None)
  Receive Date: 20090924
  Receipt Date: 20090921
  Transmission Date: 20100115
  Serious: Yes (Hospitalization)
  Sender: FDA-Public Use
  Company Number: FR-ROCHE-657678

PATIENT
  Age: 75 Year
  Sex: Female

DRUGS (4)
  1. XELODA [Suspect]
     Route: 065
     Dates: start: 20090301, end: 20090801
  2. XELODA [Suspect]
     Route: 065
     Dates: start: 20090801
  3. PYOSTACINE [Concomitant]
     Indication: COUGH
     Route: 065
  4. PNEUMOREL [Concomitant]
     Indication: COUGH
     Route: 065

REACTIONS (5)
  - CONFUSIONAL STATE [None]
  - CONVULSION [None]
  - HYPOKALAEMIA [None]
  - HYPONATRAEMIA [None]
  - PALMAR-PLANTAR ERYTHRODYSAESTHESIA SYNDROME [None]
